FAERS Safety Report 10252247 (Version 1)
Quarter: 2014Q2

REPORT INFORMATION
  Report Type: Spontaneous
  Country: GB (occurrence: None)
  Receive Date: 20140619
  Receipt Date: 20140619
  Transmission Date: 20141212
  Serious: Yes (Other)
  Sender: FDA-Public Use
  Company Number: AUR-APL-2014-06464

PATIENT
  Age: 85 Year
  Sex: Female

DRUGS (6)
  1. ALENDRONIC ACID TABLETS (ALENDRONIC ACID) TABLET [Suspect]
     Indication: OSTEOPOROSIS
     Dosage: ONCE
     Route: 048
     Dates: start: 20131106
  2. ASPIRIN (ACETYLSALICYLIC ACID) [Concomitant]
  3. CALCIUM + VITAMIN D (CALCIUM, COLECALCIFEROL) [Concomitant]
  4. GTN (GLYCERYL TRINITRATE) [Concomitant]
  5. METOPROLOL (METOPROLOL) [Concomitant]
  6. SIMVASTATIN (SIMVASTATIN) [Concomitant]

REACTIONS (5)
  - Joint swelling [None]
  - Dizziness [None]
  - Nausea [None]
  - Hyperhidrosis [None]
  - Malaise [None]
